FAERS Safety Report 10433620 (Version 4)
Quarter: 2014Q4

REPORT INFORMATION
  Report Type: Spontaneous
  Country: GB (occurrence: GB)
  Receive Date: 20140905
  Receipt Date: 20141215
  Transmission Date: 20150528
  Serious: Yes (Hospitalization)
  Sender: FDA-Public Use
  Company Number: PHFR2014GB005867

PATIENT
  Age: 58 Year
  Sex: Male
  Weight: 93.6 kg

DRUGS (7)
  1. DIAZEPAM. [Concomitant]
     Active Substance: DIAZEPAM
     Indication: AGITATION
  2. DIAZEPAM. [Concomitant]
     Active Substance: DIAZEPAM
     Indication: ANXIETY
     Dosage: 25 MG, BID
     Route: 048
     Dates: start: 20140318
  3. CLOZARIL [Suspect]
     Active Substance: CLOZAPINE
     Dosage: UKN
     Route: 048
     Dates: start: 20140823, end: 20140824
  4. DILTIAZEM [Concomitant]
     Active Substance: DILTIAZEM
     Indication: TACHYCARDIA
     Dosage: 120 MG, DAILY
     Route: 048
     Dates: start: 20140826
  5. AMOXICILLIN. [Concomitant]
     Active Substance: AMOXICILLIN
     Indication: PRODUCT USED FOR UNKNOWN INDICATION
     Dosage: 500 MG, DAILY
     Route: 048
     Dates: start: 20140920, end: 20140925
  6. CLOZARIL [Suspect]
     Active Substance: CLOZAPINE
     Indication: SCHIZOAFFECTIVE DISORDER
     Dosage: 100 MG, DAILY
     Route: 048
     Dates: start: 20140818
  7. CLOZARIL [Suspect]
     Active Substance: CLOZAPINE
     Dosage: 50 MG
     Route: 048
     Dates: start: 20140825

REACTIONS (4)
  - Hypertension [Unknown]
  - Myocardial infarction [Recovering/Resolving]
  - Bundle branch block left [Recovering/Resolving]
  - Electrocardiogram change [Recovering/Resolving]

NARRATIVE: CASE EVENT DATE: 20140824
